FAERS Safety Report 15470369 (Version 1)
Quarter: 2018Q4

REPORT INFORMATION
  Report Type: Spontaneous
  Country: IN (occurrence: IN)
  Receive Date: 20181005
  Receipt Date: 20181005
  Transmission Date: 20190205
  Serious: Yes (Hospitalization)
  Sender: FDA-Public Use
  Company Number: IN-MYLANLABS-2018M1073944

PATIENT
  Sex: Male

DRUGS (6)
  1. GEMCITABINE [Suspect]
     Active Substance: GEMCITABINE\GEMCITABINE HYDROCHLORIDE
     Dosage: SCHEDULED TO RECEIVE ON DAY 1 FROM 3RD, 4TH, 5TH AND 6TH CYCLE WITH CISPLATIN; BUT AFTER THE FOUR...
     Route: 050
  2. OXALIPLATIN. [Concomitant]
     Active Substance: OXALIPLATIN
     Dosage: SECOND CYCLE WITH GEMCITABINE
     Route: 050
     Dates: start: 20141010
  3. OXALIPLATIN. [Concomitant]
     Active Substance: OXALIPLATIN
     Indication: GALLBLADDER ADENOCARCINOMA
     Dosage: FIRST CYCLE WITH GEMCITABINE
     Route: 050
     Dates: start: 20140921
  4. GEMCITABINE [Suspect]
     Active Substance: GEMCITABINE\GEMCITABINE HYDROCHLORIDE
     Indication: GALLBLADDER ADENOCARCINOMA
     Dosage: FIRST CYCLE WITH OXALIPLATIN
     Route: 050
     Dates: start: 20140921
  5. CISPLATIN. [Suspect]
     Active Substance: CISPLATIN
     Indication: GALLBLADDER ADENOCARCINOMA
     Dosage: SCHEDULED TO RECEIVE ON DAYS 1, 2 AND 3 FROM 3RD, 4TH, 5TH AND 6TH CYCLE WITH GEMCITABINE; BUT TH...
     Route: 050
  6. GEMCITABINE [Suspect]
     Active Substance: GEMCITABINE\GEMCITABINE HYDROCHLORIDE
     Dosage: SECOND CYCLE WITH OXALIPLATIN
     Route: 050
     Dates: start: 20141010

REACTIONS (1)
  - Angina unstable [Recovered/Resolved]

NARRATIVE: CASE EVENT DATE: 20150111
